FAERS Safety Report 8104737-2 (Version None)
Quarter: 2012Q1

REPORT INFORMATION
  Report Type: 
  Country: None (occurrence: None)
  Receive Date: 20120130
  Receipt Date: 20120118
  Transmission Date: 20120608
  Serious: Yes (Other)
  Sender: FDA-Public Use
  Company Number: JP-PFIZER INC-2012014714

PATIENT
  Age: 74 Year
  Sex: Female

DRUGS (7)
  1. AMLODIPINE BESILATE [Concomitant]
  2. METHYLPREDNISOLONE SODIUM SUCCINATE [Suspect]
     Indication: EYE DISORDER
     Dosage: 500 MG/DAY
  3. TOCOPHERYL NICOTINATE [Concomitant]
  4. FAMOTIDINE [Suspect]
  5. ACARBOSE [Concomitant]
  6. DILTIAZEM HYDROCHLORIDE [Concomitant]
  7. PRAVASTATIN SODIUM [Concomitant]

REACTIONS (2)
  - DRUG ERUPTION [None]
  - TOXIC SKIN ERUPTION [None]
